FAERS Safety Report 7685896-2 (Version None)
Quarter: 2011Q3

REPORT INFORMATION
  Report Type: 
  Country: None (occurrence: None)
  Receive Date: 20110815
  Receipt Date: 20110815
  Transmission Date: 20111222
  Serious: Yes (Hospitalization)
  Sender: FDA-Public Use
  Company Number: None

PATIENT
  Sex: Female
  Weight: 72.5755 kg

DRUGS (1)
  1. SIMVASTATIN [Suspect]
     Indication: CARDIAC DISORDER
     Dosage: 80 MG CAPSULE 1 PER DAY
     Dates: start: 20110506, end: 20110610

REACTIONS (5)
  - ASTHENIA [None]
  - LIVER DISORDER [None]
  - MUSCULAR WEAKNESS [None]
  - WALKING AID USER [None]
  - RENAL DISORDER [None]
